FAERS Safety Report 17140847 (Version 3)
Quarter: 2020Q2

REPORT INFORMATION
  Report Type: Spontaneous
  Country: US (occurrence: US)
  Receive Date: 20191211
  Receipt Date: 20200402
  Transmission Date: 20200713
  Serious: Yes (Hospitalization)
  Sender: FDA-Public Use
  Company Number: US-VERTEX PHARMACEUTICALS-2019-012754

PATIENT
  Age: 13 Year
  Sex: Female

DRUGS (24)
  1. MAGNESIUM OXIDE. [Concomitant]
     Active Substance: MAGNESIUM OXIDE
  2. PROAIR HFA [Concomitant]
     Active Substance: ALBUTEROL SULFATE
  3. SODIUM CHLORIDE. [Concomitant]
     Active Substance: SODIUM CHLORIDE
     Dosage: 4 MILLILITER, BID
     Route: 055
  4. VITAMIN A [RETINOL] [Concomitant]
     Active Substance: RETINOL
  5. MONTELUKAST [Concomitant]
     Active Substance: MONTELUKAST SODIUM
     Dosage: 1 DOSAGE FORM, QD
     Route: 048
  6. PHYTONADIONE. [Concomitant]
     Active Substance: PHYTONADIONE
  7. FLUTICASONE. [Concomitant]
     Active Substance: FLUTICASONE
     Dosage: UNK, BID
     Route: 045
  8. NOVOLOG [Concomitant]
     Active Substance: INSULIN ASPART
     Dosage: 45 UNITS/DAY
     Route: 058
  9. CREON [Concomitant]
     Active Substance: PANCRELIPASE AMYLASE\PANCRELIPASE LIPASE\PANCRELIPASE PROTEASE
     Dosage: 6 DOSAGE FORM, TID
     Route: 048
  10. DESMOPRESSIN [Concomitant]
     Active Substance: DESMOPRESSIN
     Dosage: 3 DOSAGE FORM
     Route: 048
  11. AZTREONAM LYSINE [Concomitant]
     Active Substance: AZTREONAM LYSINE
     Dosage: UNK, TID( 28 DAYS)
     Route: 045
  12. SYMDEKO [Suspect]
     Active Substance: IVACAFTOR\TEZACAFTOR
     Indication: CYSTIC FIBROSIS
     Dosage: 100MG TEZACAFTOR/150MG IVACAFTOR, AM; 150MG IVACAFTOR, PM
     Route: 048
     Dates: start: 20180713, end: 201912
  13. OMEPRAZOLE. [Concomitant]
     Active Substance: OMEPRAZOLE
  14. PULMOZYME [Concomitant]
     Active Substance: DORNASE ALFA
     Dosage: 2.5 MILLILITER
     Route: 045
  15. CYPROHEPTADINE. [Concomitant]
     Active Substance: CYPROHEPTADINE
     Dosage: 10 MILLILITER, THRICE A WEEK
     Route: 048
  16. AMOXICILLIN. [Concomitant]
     Active Substance: AMOXICILLIN
  17. AZITHROMYCIN ANHYDROUS. [Concomitant]
     Active Substance: AZITHROMYCIN ANHYDROUS
     Dosage: 1 DOSAGE FORM, THRICE A WEEK
     Route: 048
  18. HUMALOG [Concomitant]
     Active Substance: INSULIN LISPRO
     Dosage: 45 UNITS/ DAY
     Route: 058
  19. EMLA [Concomitant]
     Active Substance: LIDOCAINE\PRILOCAINE
  20. AZATHIOPRINE. [Concomitant]
     Active Substance: AZATHIOPRINE
  21. MEPHYTON [Concomitant]
     Active Substance: PHYTONADIONE
  22. SYMBICORT [Concomitant]
     Active Substance: BUDESONIDE\FORMOTEROL FUMARATE DIHYDRATE
     Dosage: 2 PUFFS
     Route: 055
  23. TACROLIMUS. [Concomitant]
     Active Substance: TACROLIMUS
     Dosage: 1 DOSAGE FORM, BID
     Route: 048
  24. VITAMIN D 2000 [Concomitant]
     Active Substance: VITAMIN D NOS
     Dosage: 1 DOSAGE FORM, BID
     Route: 048

REACTIONS (3)
  - Infective pulmonary exacerbation of cystic fibrosis [Recovered/Resolved]
  - Metapneumovirus infection [Recovered/Resolved]
  - Pneumonia [Recovered/Resolved]

NARRATIVE: CASE EVENT DATE: 20191113
